FAERS Safety Report 9002729 (Version 1)
Quarter: 2013Q1

REPORT INFORMATION
  Report Type: Spontaneous
  Country: US (occurrence: US)
  Receive Date: 20130107
  Receipt Date: 20130107
  Transmission Date: 20140127
  Serious: No
  Sender: FDA-Public Use
  Company Number: US-GLAXOSMITHKLINE-A0995973A

PATIENT
  Age: 40 Year
  Sex: Female
  Weight: 82.7 kg

DRUGS (2)
  1. BENLYSTA [Suspect]
     Indication: SYSTEMIC LUPUS ERYTHEMATOSUS
     Dosage: 10MGK CYCLIC
     Route: 042
     Dates: start: 20120906
  2. NO CONCURRENT MEDICATION [Concomitant]

REACTIONS (2)
  - VIIth nerve paralysis [Recovering/Resolving]
  - Neurological symptom [Recovering/Resolving]
